FAERS Safety Report 12207813 (Version 7)
Quarter: 2017Q1

REPORT INFORMATION
  Report Type: Report from Study
  Country: US (occurrence: US)
  Receive Date: 20160324
  Receipt Date: 20170305
  Transmission Date: 20170428
  Serious: No
  Sender: FDA-Public Use
  Company Number: PHEH2016US007110

PATIENT
  Age: 11 Year
  Sex: Female

DRUGS (1)
  1. ILARIS [Suspect]
     Active Substance: CANAKINUMAB
     Indication: JUVENILE IDIOPATHIC ARTHRITIS
     Dosage: 150 MG, EVERY 4 WEEKS
     Route: 058

REACTIONS (7)
  - Influenza [Unknown]
  - Infection [Unknown]
  - Middle insomnia [Unknown]
  - Fatigue [Unknown]
  - Vomiting [Recovered/Resolved]
  - Inappropriate schedule of drug administration [Unknown]
  - Malaise [Unknown]

NARRATIVE: CASE EVENT DATE: 20160323
